FAERS Safety Report 14712259 (Version 2)
Quarter: 2018Q2

REPORT INFORMATION
  Report Type: Report from Study
  Country: None (occurrence: US)
  Receive Date: 20180404
  Receipt Date: 20180410
  Transmission Date: 20180711
  Serious: Yes (Death, Hospitalization)
  Sender: FDA-Public Use
  Company Number: US-ABBVIE-18K-163-2310220-00

PATIENT
  Age: 70 Year
  Sex: Male
  Weight: 63.56 kg

DRUGS (1)
  1. ANDROGEL [Suspect]
     Active Substance: TESTOSTERONE
     Indication: HYPOGONADISM
     Dosage: SINGLE PACKET
     Route: 061
     Dates: start: 20150325

REACTIONS (3)
  - Death [Fatal]
  - Pneumonia [Unknown]
  - Renal failure [Unknown]

NARRATIVE: CASE EVENT DATE: 20160628
